FAERS Safety Report 17777811 (Version 2)
Quarter: 2020Q2

REPORT INFORMATION
  Report Type: Report from Study
  Country: US (occurrence: US)
  Receive Date: 20200513
  Receipt Date: 20200520
  Transmission Date: 20200714
  Serious: No
  Sender: FDA-Public Use
  Company Number: NVSC2020US129276

PATIENT
  Age: 75 Year
  Sex: Female

DRUGS (2)
  1. ENTRESTO [Suspect]
     Active Substance: SACUBITRIL\VALSARTAN
     Dosage: 50 MG (24/26 MG), BID
     Route: 048
     Dates: start: 202004
  2. ENTRESTO [Suspect]
     Active Substance: SACUBITRIL\VALSARTAN
     Indication: CARDIAC FAILURE CHRONIC
     Dosage: 50 MG (24/26 MG), BID
     Route: 048
     Dates: start: 202003

REACTIONS (5)
  - Ejection fraction decreased [Unknown]
  - Dizziness [Unknown]
  - Weight fluctuation [Unknown]
  - Dyspnoea [Not Recovered/Not Resolved]
  - Dizziness postural [Unknown]

NARRATIVE: CASE EVENT DATE: 202003
